FAERS Safety Report 5263710-2 (Version None)
Quarter: 2007Q1

REPORT INFORMATION
  Report Type: 
  Country: None (occurrence: None)
  Receive Date: 20070313
  Receipt Date: 20070301
  Transmission Date: 20070707
  Serious: Yes (Other)
  Sender: FDA-Public Use
  Company Number: BR-AVENTIS-200622870GDDC

PATIENT
  Age: 42 Year
  Sex: Female
  Weight: 58 kg

DRUGS (5)
  1. LANTUS [Suspect]
     Route: 058
  2. LANTUS [Suspect]
     Route: 058
     Dates: end: 20061208
  3. LANTUS [Suspect]
     Route: 058
     Dates: start: 20061211
  4. OPTIPEN (INSULIN PUMP) [Suspect]
  5. EUTHYROX [Concomitant]
     Indication: HYPERTHYROIDISM
     Dosage: DOSE QUANTITY: 1
     Route: 048

REACTIONS (4)
  - DIABETIC KETOACIDOSIS [None]
  - HYPERGLYCAEMIA [None]
  - KETOSIS [None]
  - PHARMACEUTICAL PRODUCT COMPLAINT [None]
